FAERS Safety Report 9832484 (Version 3)
Quarter: 2014Q2

REPORT INFORMATION
  Report Type: Report from Study
  Country: CA (occurrence: CA)
  Receive Date: 20140121
  Receipt Date: 20140425
  Transmission Date: 20141212
  Serious: Yes (Death, Hospitalization)
  Sender: FDA-Public Use
  Company Number: CA-JNJFOC-20140108308

PATIENT
  Age: 57 Year
  Sex: Male
  Weight: 95.26 kg

DRUGS (5)
  1. REMICADE [Suspect]
     Indication: COLITIS ULCERATIVE
     Dosage: APPROXIMATELY 400 MG
     Route: 042
     Dates: end: 20131230
  2. REMICADE [Suspect]
     Indication: COLITIS ULCERATIVE
     Route: 042
     Dates: start: 20131201
  3. REMICADE [Suspect]
     Indication: COLITIS ULCERATIVE
     Dosage: APPROXIMATELY 400 MG LOADING, 2ND DOSE
     Route: 042
     Dates: start: 20131214
  4. CORTICOSTEROIDS [Suspect]
     Indication: PRODUCT USED FOR UNKNOWN INDICATION
     Route: 065
  5. ANCEF [Concomitant]
     Route: 042

REACTIONS (6)
  - Sepsis [Fatal]
  - Colitis [Fatal]
  - Post procedural haemorrhage [Unknown]
  - Bursitis infective [Unknown]
  - Myopathy [Unknown]
  - Muscular weakness [Unknown]
